FAERS Safety Report 21480031 (Version 2)
Quarter: 2022Q4

REPORT INFORMATION
  Report Type: Spontaneous
  Country: US (occurrence: US)
  Receive Date: 20221019
  Receipt Date: 20221103
  Transmission Date: 20230113
  Serious: Yes (Hospitalization, Other)
  Sender: FDA-Public Use
  Company Number: US-NAPO PHARMACEUTICALS-2022US004591

PATIENT

DRUGS (2)
  1. MYTESI [Suspect]
     Active Substance: CROFELEMER
     Indication: Diarrhoea
     Dosage: 125 MG, BID
     Route: 048
     Dates: start: 20211210
  2. MYTESI [Suspect]
     Active Substance: CROFELEMER
     Indication: HIV infection

REACTIONS (1)
  - Femur fracture [Unknown]
